FAERS Safety Report 7814248-7 (Version None)
Quarter: 2011Q4

REPORT INFORMATION
  Report Type: 
  Country: None (occurrence: None)
  Receive Date: 20111012
  Receipt Date: 20111004
  Transmission Date: 20120403
  Serious: Yes (Hospitalization)
  Sender: FDA-Public Use
  Company Number: 1000021868

PATIENT
  Age: 51 Year
  Sex: Male

DRUGS (3)
  1. CLONAZEPAM [Suspect]
     Dosage: 60 DROPS OF 2.5 MG/ML (60 GTT,1 IN 1 D),ORAL
     Route: 048
     Dates: start: 20110526, end: 20110530
  2. TEGRETOL [Suspect]
     Dosage: 100 MG (100 MG,1 IN 1 D), ORAL
     Route: 048
     Dates: start: 20110526, end: 20110530
  3. MILNACIPRAN (MILNACIPRAN HYDROCHLORIDE) (50 MILLIGRAM, CAPSULES) [Suspect]
     Dosage: 100 MG (100 MG, 1IN 1 D), ORAL
     Route: 048
     Dates: start: 20110516, end: 20110528

REACTIONS (2)
  - STAPHYLOCOCCAL SEPSIS [None]
  - TOXIC SKIN ERUPTION [None]
